FAERS Safety Report 4493561-8 (Version None)
Quarter: 2004Q4

REPORT INFORMATION
  Report Type: 
  Country: None (occurrence: None)
  Receive Date: 20041102
  Receipt Date: 20041024
  Transmission Date: 20050328
  Serious: Yes (Other)
  Sender: FDA-Public Use
  Company Number: 2004240973US

PATIENT
  Age: 64 Year
  Sex: Female

DRUGS (3)
  1. CELEBREX [Suspect]
     Indication: BACK PAIN
     Dosage: 200 MG, QD, ORAL
     Route: 048
     Dates: start: 20040928, end: 20041019
  2. LOTREL [Concomitant]
  3. LIPITOR [Concomitant]

REACTIONS (5)
  - ADVERSE DRUG REACTION [None]
  - CHEST PAIN [None]
  - DYSPNOEA [None]
  - OEDEMA PERIPHERAL [None]
  - RESPIRATION ABNORMAL [None]
